FAERS Safety Report 5787573-1 (Version None)
Quarter: 2008Q2

REPORT INFORMATION
  Report Type: 
  Country: None (occurrence: None)
  Receive Date: 20080625
  Receipt Date: 20080325
  Transmission Date: 20081010
  Serious: No
  Sender: FDA-Public Use
  Company Number: US-ASTRAZENECA-2007UW23969

PATIENT
  Age: 49 Year
  Sex: Female

DRUGS (7)
  1. PULMICORT FLEXHALER [Suspect]
     Indication: ASTHMA
     Route: 055
     Dates: start: 20071005
  2. PULMICORT TURBHALER [Concomitant]
     Indication: ASTHMA
     Route: 055
     Dates: start: 20030101, end: 20071001
  3. ACCOLATE [Concomitant]
  4. SEREVENT [Concomitant]
  5. IMITREX [Concomitant]
  6. FLONASE [Concomitant]
  7. ALBUTEROL [Concomitant]

REACTIONS (2)
  - ASTHMA [None]
  - ORAL FUNGAL INFECTION [None]
